FAERS Safety Report 5133029-9 (Version None)
Quarter: 2006Q4

REPORT INFORMATION
  Report Type: 
  Country: None (occurrence: None)
  Receive Date: 20061018
  Receipt Date: 20061013
  Transmission Date: 20070319
  Serious: Yes (Death, Disabling)
  Sender: FDA-Public Use
  Company Number: TCI2005A04921

PATIENT
  Age: 76 Year
  Sex: Male

DRUGS (5)
  1. LEUPLIN SR [Suspect]
     Indication: PROSTATE CANCER
     Dosage: 11.25 MG (11.25 MG,1 IN 12 WK)
     Route: 058
     Dates: start: 20050607, end: 20051122
  2. CASODEX [Concomitant]
  3. MARZULENE S [Concomitant]
  4. THEOLONG                   200MG(THEOPHYLLINE) [Concomitant]
     Dates: start: 19921130, end: 20060629
  5. LASIX [Concomitant]
     Dosage: 40MG
     Route: 048

REACTIONS (14)
  - BLOOD POTASSIUM INCREASED [None]
  - CONDITION AGGRAVATED [None]
  - CONTUSION [None]
  - DEHYDRATION [None]
  - HAEMATURIA [None]
  - HAEMODIALYSIS [None]
  - HYPOTENSION [None]
  - INTERSTITIAL LUNG DISEASE [None]
  - PROTEINURIA [None]
  - RENAL FAILURE [None]
  - RESPIRATORY FAILURE [None]
  - RIGHT VENTRICULAR FAILURE [None]
  - ROAD TRAFFIC ACCIDENT [None]
  - URINARY CASTS [None]
